FAERS Safety Report 7456559-3 (Version None)
Quarter: 2011Q2

REPORT INFORMATION
  Report Type: 
  Country: None (occurrence: None)
  Receive Date: 20110503
  Receipt Date: 20110428
  Transmission Date: 20111010
  Serious: Yes (Other)
  Sender: FDA-Public Use
  Company Number: FR-PFIZER INC-2011091678

PATIENT
  Age: 62 Year
  Sex: Female

DRUGS (5)
  1. TAHOR [Suspect]
     Dosage: UNK
  2. GLICLAZIDE [Concomitant]
  3. ENDOTELON [Concomitant]
  4. APROVEL [Concomitant]
  5. ATENOLOL [Concomitant]

REACTIONS (3)
  - TENDONITIS [None]
  - TENDON RUPTURE [None]
  - MYALGIA [None]
